FAERS Safety Report 9853931 (Version 2)
Quarter: 2014Q1

REPORT INFORMATION
  Report Type: Spontaneous
  Country: US (occurrence: US)
  Receive Date: 20140129
  Receipt Date: 20140129
  Transmission Date: 20141002
  Serious: No
  Sender: FDA-Public Use
  Company Number: US-PFIZER INC-2013281883

PATIENT
  Sex: 0

DRUGS (4)
  1. ENBREL [Suspect]
     Dosage: UNK
     Route: 065
  2. METHOTREXATE SODIUM [Suspect]
     Dosage: UNK
  3. XELJANZ [Concomitant]
     Dosage: UNK
  4. PREDNISONE [Concomitant]
     Dosage: UNK

REACTIONS (5)
  - Nausea [Unknown]
  - Feeling abnormal [Unknown]
  - Hypersensitivity [Unknown]
  - Sinusitis [Unknown]
  - Malaise [Unknown]
